FAERS Safety Report 7365791-9 (Version None)
Quarter: 2011Q1

REPORT INFORMATION
  Report Type: 
  Country: None (occurrence: None)
  Receive Date: 20110322
  Receipt Date: 20110316
  Transmission Date: 20110831
  Serious: Yes (Hospitalization, Other)
  Sender: FDA-Public Use
  Company Number: US-ABBOTT-11P-163-0711961-00

PATIENT
  Sex: Female
  Weight: 47.67 kg

DRUGS (8)
  1. IRON [Concomitant]
     Indication: ANAEMIA
  2. MULTI-VITAMIN [Concomitant]
     Indication: PRODUCT USED FOR UNKNOWN INDICATION
  3. HUMIRA [Suspect]
     Indication: CROHN'S DISEASE
     Dates: start: 20090101, end: 20101001
  4. CALCIUM [Concomitant]
     Indication: PRODUCT USED FOR UNKNOWN INDICATION
  5. CELEXA [Concomitant]
     Indication: DEPRESSION
  6. IRON [Concomitant]
     Indication: IRON DEFICIENCY
  7. SYNTHROID [Concomitant]
     Indication: THYROIDECTOMY
  8. AZATHIOPRINE [Concomitant]
     Indication: CROHN'S DISEASE

REACTIONS (5)
  - PROCTALGIA [None]
  - CROHN'S DISEASE [None]
  - DIARRHOEA [None]
  - DEHYDRATION [None]
  - RECTAL ABSCESS [None]
